FAERS Safety Report 15856568 (Version 2)
Quarter: 2019Q3

REPORT INFORMATION
  Report Type: Report from Study
  Country: US (occurrence: US)
  Receive Date: 20190123
  Receipt Date: 20190925
  Transmission Date: 20191004
  Serious: No
  Sender: FDA-Public Use
  Company Number: PHEH2019US002912

PATIENT
  Age: 43 Year
  Sex: Female

DRUGS (2)
  1. GILENYA [Suspect]
     Active Substance: FINGOLIMOD HYDROCHLORIDE
     Indication: MULTIPLE SCLEROSIS
     Dosage: UNK UNK, QD
     Route: 048
     Dates: start: 20100607, end: 20190116
  2. GILENYA [Suspect]
     Active Substance: FINGOLIMOD HYDROCHLORIDE
     Dosage: 0.5 MG, QD
     Route: 048
     Dates: start: 2013

REACTIONS (10)
  - Bowel movement irregularity [Not Recovered/Not Resolved]
  - Colour blindness [Not Recovered/Not Resolved]
  - Injection site erythema [Unknown]
  - Insomnia [Unknown]
  - Vomiting [Not Recovered/Not Resolved]
  - Skin lesion [Unknown]
  - Injection site warmth [Unknown]
  - Headache [Unknown]
  - Memory impairment [Unknown]
  - Nasopharyngitis [Unknown]

NARRATIVE: CASE EVENT DATE: 20190107
